FAERS Safety Report 6825119-7 (Version None)
Quarter: 2010Q3

REPORT INFORMATION
  Report Type: 
  Country: None (occurrence: None)
  Receive Date: 20100708
  Receipt Date: 20070130
  Transmission Date: 20110219
  Serious: Yes (Other)
  Sender: FDA-Public Use
  Company Number: US-PFIZER INC-2006153940

PATIENT
  Sex: Male
  Weight: 71.7 kg

DRUGS (2)
  1. CHANTIX [Suspect]
     Indication: SMOKING CESSATION THERAPY
     Dates: start: 20060901, end: 20061001
  2. ADVIL LIQUI-GELS [Concomitant]

REACTIONS (7)
  - ABNORMAL DREAMS [None]
  - DISTURBANCE IN ATTENTION [None]
  - HEADACHE [None]
  - HEARING IMPAIRED [None]
  - SENSATION OF PRESSURE [None]
  - TINNITUS [None]
  - TOOTHACHE [None]
